FAERS Safety Report 12985672 (Version 1)
Quarter: 2016Q4

REPORT INFORMATION
  Report Type: Spontaneous
  Country: FR (occurrence: FR)
  Receive Date: 20161130
  Receipt Date: 20161130
  Transmission Date: 20170207
  Serious: Yes (Life-Threatening, Hospitalization, Other)
  Sender: FDA-Public Use
  Company Number: FR-ACCORD-045909

PATIENT
  Age: 83 Year
  Sex: Male

DRUGS (10)
  1. TRAMADOL/TRAMADOL HYDROCHLORIDE [Suspect]
     Active Substance: TRAMADOL HYDROCHLORIDE
     Indication: PRODUCT USED FOR UNKNOWN INDICATION
     Dosage: JANUARY 19TH: PRESCRIPTION AND ADMINISTRATION OF ONE DOSE OF TRAMADOL EXTENDED RELEASE 100 MG
  2. PERINDOPRIL/PERINDOPRIL ERBUMINE [Concomitant]
  3. SPIRONOLACTONE. [Concomitant]
     Active Substance: SPIRONOLACTONE
  4. FLUINDIONE [Concomitant]
     Active Substance: FLUINDIONE
  5. BISOPROLOL [Concomitant]
     Active Substance: BISOPROLOL
  6. ROSUVASTATIN/ROSUVASTATIN CALCIUM [Concomitant]
  7. FUROSEMIDE. [Concomitant]
     Active Substance: FUROSEMIDE
  8. PANTOPRAZOLE [Concomitant]
     Active Substance: PANTOPRAZOLE SODIUM
  9. PARACETAMOL [Concomitant]
     Active Substance: ACETAMINOPHEN
     Route: 042
  10. ESCITALOPRAM [Interacting]
     Active Substance: ESCITALOPRAM OXALATE
     Indication: PRODUCT USED FOR UNKNOWN INDICATION

REACTIONS (2)
  - Drug interaction [Unknown]
  - Serotonin syndrome [Recovered/Resolved]
